FAERS Safety Report 9912442 (Version 1)
Quarter: 2014Q1

REPORT INFORMATION
  Report Type: Spontaneous
  Country: GB (occurrence: GB)
  Receive Date: 20140220
  Receipt Date: 20140220
  Transmission Date: 20141002
  Serious: Yes (Other)
  Sender: FDA-Public Use
  Company Number: GB-MERCK-1402GBR008719

PATIENT
  Sex: Male

DRUGS (3)
  1. SITAGLIPTIN PHOSPHATE [Suspect]
     Dosage: 100 MG, QD (100MG 1/1 DAYS)
     Dates: start: 2013
  2. METFORMIN [Suspect]
     Indication: TYPE 2 DIABETES MELLITUS
     Dosage: 1350 MG, BID (2/1 DAYS)
  3. METFORMIN [Suspect]
     Dosage: 500 MG, BID

REACTIONS (1)
  - Hypoglycaemia [Not Recovered/Not Resolved]
